FAERS Safety Report 6338153-0 (Version None)
Quarter: 2009Q3

REPORT INFORMATION
  Report Type: 
  Country: None (occurrence: None)
  Receive Date: 20090902
  Receipt Date: 20090826
  Transmission Date: 20100115
  Serious: No
  Sender: FDA-Public Use
  Company Number: US-B.I. PHARMACEUTICALS,INC./RIDGEFIELD-2009-BP-08598BP

PATIENT
  Age: 71 Year
  Sex: Male
  Weight: 85.28 kg

DRUGS (2)
  1. SPIRIVA [Suspect]
     Indication: CHRONIC OBSTRUCTIVE PULMONARY DISEASE
     Dosage: 18 MCG
     Route: 055
     Dates: end: 20080801
  2. ADVAIR HFA [Concomitant]

REACTIONS (2)
  - PROSTATOMEGALY [None]
  - URINARY RETENTION [None]
